FAERS Safety Report 19514048 (Version 2)
Quarter: 2021Q3

REPORT INFORMATION
  Report Type: Spontaneous
  Country: US (occurrence: US)
  Receive Date: 20210709
  Receipt Date: 20210828
  Transmission Date: 20211014
  Serious: No
  Sender: FDA-Public Use
  Company Number: NVSC2021US148440

PATIENT
  Age: 39 Year
  Sex: Male

DRUGS (2)
  1. ADAKVEO [Suspect]
     Active Substance: CRIZANLIZUMAB-TMCA
     Dosage: UNK
     Route: 065
     Dates: start: 20210813
  2. ADAKVEO [Suspect]
     Active Substance: CRIZANLIZUMAB-TMCA
     Indication: SICKLE CELL DISEASE
     Dosage: SOLUTION FOR INJECTION
     Route: 042
     Dates: start: 20200222

REACTIONS (2)
  - Nausea [Recovering/Resolving]
  - Abdominal discomfort [Unknown]

NARRATIVE: CASE EVENT DATE: 20200222
